FAERS Safety Report 10141951 (Version 2)
Quarter: 2014Q2

REPORT INFORMATION
  Report Type: Spontaneous
  Country: US (occurrence: US)
  Receive Date: 20140429
  Receipt Date: 20140523
  Transmission Date: 20141212
  Serious: No
  Sender: FDA-Public Use
  Company Number: US-009507513-1404USA013271

PATIENT
  Age: 76 Year
  Sex: Female

DRUGS (1)
  1. NASONEX [Suspect]
     Dosage: 2 SPRAYS ON NOSTRIL, QD
     Route: 055
     Dates: start: 20140416

REACTIONS (3)
  - Drug ineffective [Unknown]
  - Product quality issue [Unknown]
  - Drug dose omission [Unknown]
